FAERS Safety Report 26080306 (Version 1)
Quarter: 2025Q4

REPORT INFORMATION
  Report Type: Spontaneous
  Country: CN (occurrence: CN)
  Receive Date: 20251124
  Receipt Date: 20251124
  Transmission Date: 20260118
  Serious: Yes (Hospitalization)
  Sender: NOVAST LABORATORIES LTD
  Company Number: CN-NOVAST LABORATORIES INC.-2025NOV000303

PATIENT

DRUGS (5)
  1. METOPROLOL SUCCINATE [Suspect]
     Active Substance: METOPROLOL SUCCINATE
     Indication: Hypertension
     Dosage: 50 MILLIGRAM, QD
     Route: 048
     Dates: start: 20251105
  2. TICAGRELOR [Suspect]
     Active Substance: TICAGRELOR
     Indication: Coronary arterial stent insertion
     Dosage: 90 MILLIGRAM, BID
     Route: 048
     Dates: start: 20251105
  3. ROSUVASTATIN CALCIUM [Suspect]
     Active Substance: ROSUVASTATIN CALCIUM
     Indication: Coronary arterial stent insertion
     Dosage: 10 MILLIGRAM, QD
     Route: 048
     Dates: start: 20251105
  4. DAPAGLIFLOZIN [Suspect]
     Active Substance: DAPAGLIFLOZIN
     Indication: Coronary arterial stent insertion
     Dosage: 10 MILLIGRAM, QD
     Route: 048
     Dates: start: 20251105
  5. ASPIRIN [Suspect]
     Active Substance: ASPIRIN
     Indication: Coronary arterial stent insertion
     Dosage: 100 MILLIGRAM, QD
     Route: 048
     Dates: start: 20251105

REACTIONS (6)
  - Abnormal faeces [Unknown]
  - Abnormal dreams [Unknown]
  - Eructation [Unknown]
  - Poor quality sleep [Unknown]
  - Poor quality sleep [Unknown]
  - Diarrhoea [Unknown]

NARRATIVE: CASE EVENT DATE: 20251106
